FAERS Safety Report 7468934-1 (Version None)
Quarter: 2011Q2

REPORT INFORMATION
  Report Type: 
  Country: None (occurrence: None)
  Receive Date: 20110510
  Receipt Date: 20110118
  Transmission Date: 20111010
  Serious: No
  Sender: FDA-Public Use
  Company Number: A0906912A

PATIENT
  Sex: Male

DRUGS (1)
  1. VELTIN [Suspect]
     Indication: ACNE
     Route: 061

REACTIONS (1)
  - SKIN HYPERPIGMENTATION [None]
